FAERS Safety Report 25772827 (Version 1)
Quarter: 2025Q3

REPORT INFORMATION
  Report Type: Spontaneous
  Country: US (occurrence: None)
  Receive Date: 20250906
  Receipt Date: 20250906
  Transmission Date: 20251020
  Serious: Yes (Hospitalization, Disabling, Other)
  Sender: FDA-CTU
  Company Number: None

PATIENT
  Age: 64 Year
  Sex: Female
  Weight: 62.55 kg

DRUGS (7)
  1. EFFEXOR XR [Suspect]
     Active Substance: VENLAFAXINE HYDROCHLORIDE
     Indication: Anxiety
  2. PRISTQ [Concomitant]
  3. KLONOPIN [Concomitant]
     Active Substance: CLONAZEPAM
  4. Fish Oil tablet [Concomitant]
  5. VITAMIN C [Concomitant]
     Active Substance: ASCORBIC ACID
  6. VITAMIN D [Concomitant]
     Active Substance: VITAMIN D NOS
  7. VITAMIN E [Concomitant]
     Active Substance: .ALPHA.-TOCOPHEROL

REACTIONS (19)
  - Drug withdrawal syndrome [None]
  - Impaired driving ability [None]
  - Brain injury [None]
  - Nervous system injury [None]
  - Illness [None]
  - Emotional distress [None]
  - Electric shock sensation [None]
  - Chills [None]
  - Tinnitus [None]
  - Nausea [None]
  - Decreased appetite [None]
  - Insomnia [None]
  - Merycism [None]
  - Dizziness [None]
  - Akathisia [None]
  - Therapy interrupted [None]
  - Inappropriate schedule of product administration [None]
  - Cognitive disorder [None]
  - Anger [None]

NARRATIVE: CASE EVENT DATE: 20250204
